FAERS Safety Report 4614356-8 (Version None)
Quarter: 2005Q1

REPORT INFORMATION
  Report Type: 
  Country: None (occurrence: None)
  Receive Date: 20050315
  Receipt Date: 20050310
  Transmission Date: 20050727
  Serious: Yes (Life-Threatening)
  Sender: FDA-Public Use
  Company Number: 2005AP01608

PATIENT
  Age: 57 Year
  Sex: Male

DRUGS (1)
  1. IRESSA [Suspect]
     Indication: NEOPLASM MALIGNANT

REACTIONS (1)
  - HEPATIC FUNCTION ABNORMAL [None]
